FAERS Safety Report 7079328-5 (Version None)
Quarter: 2010Q4

REPORT INFORMATION
  Report Type: 
  Country: None (occurrence: None)
  Receive Date: 20101102
  Receipt Date: 20100526
  Transmission Date: 20110411
  Serious: No
  Sender: FDA-Public Use
  Company Number: A0861458A

PATIENT
  Sex: Female

DRUGS (4)
  1. RYTHMOL SR [Suspect]
     Indication: ATRIAL FIBRILLATION
     Dosage: 225MG THREE TIMES PER DAY
     Route: 048
     Dates: start: 20090101
  2. WARFARIN [Concomitant]
  3. VERAPAMIL [Concomitant]
  4. UNKNOWN MEDICATION [Concomitant]

REACTIONS (2)
  - NAUSEA [None]
  - VOMITING [None]
